FAERS Safety Report 15749945 (Version 1)
Quarter: 2018Q4

REPORT INFORMATION
  Report Type: Spontaneous
  Country: US (occurrence: US)
  Receive Date: 20181220
  Receipt Date: 20181220
  Transmission Date: 20190205
  Serious: No
  Sender: FDA-Public Use
  Company Number: None

PATIENT
  Age: 29 Year
  Sex: Female
  Weight: 104.33 kg

DRUGS (1)
  1. MIRENA [Suspect]
     Active Substance: LEVONORGESTREL

REACTIONS (6)
  - Eye swelling [None]
  - Rash [None]
  - Pruritus [None]
  - Rash erythematous [None]
  - Urticaria [None]
  - Swelling face [None]

NARRATIVE: CASE EVENT DATE: 20181218
